FAERS Safety Report 18499206 (Version 1)
Quarter: 2020Q4

REPORT INFORMATION
  Report Type: Spontaneous
  Country: US (occurrence: US)
  Receive Date: 20201112
  Receipt Date: 20201112
  Transmission Date: 20210114
  Serious: Yes (Life-Threatening, Hospitalization, Other)
  Sender: FDA-Public Use
  Company Number: US-ELI_LILLY_AND_COMPANY-US202011005266

PATIENT
  Age: 34 Year
  Sex: Male

DRUGS (2)
  1. OLANZAPINE 10MG [Suspect]
     Active Substance: OLANZAPINE
     Dosage: 20 MG, DAILY
     Route: 065
  2. OLANZAPINE 10MG [Suspect]
     Active Substance: OLANZAPINE
     Indication: SCHIZOAFFECTIVE DISORDER
     Dosage: 10 MG, DAILY
     Route: 065

REACTIONS (12)
  - Hyponatraemia [Unknown]
  - Weight decreased [Unknown]
  - Mental disorder [Recovered/Resolved]
  - Muscle rigidity [Unknown]
  - Hyponatraemia [Recovered/Resolved]
  - Agitation [Unknown]
  - Seizure [Unknown]
  - Restlessness [Unknown]
  - Eye disorder [Unknown]
  - Tachycardia [Unknown]
  - Speech disorder [Unknown]
  - Vomiting [Unknown]
